FAERS Safety Report 10228708 (Version 2)
Quarter: 2015Q2

REPORT INFORMATION
  Report Type: Spontaneous
  Country: US (occurrence: US)
  Receive Date: 20140610
  Receipt Date: 20150611
  Transmission Date: 20150821
  Serious: No
  Sender: FDA-Public Use
  Company Number: US-ENDO PHARMACEUTICALS INC.-LORA20140006

PATIENT
  Sex: Male
  Weight: 136.2 kg

DRUGS (1)
  1. LORAZEPAM TABLETS 1MG [Suspect]
     Active Substance: LORAZEPAM
     Indication: PRODUCT USED FOR UNKNOWN INDICATION
     Route: 048

REACTIONS (1)
  - Intentional product misuse [Recovered/Resolved]
